FAERS Safety Report 18988676 (Version 2)
Quarter: 2021Q2

REPORT INFORMATION
  Report Type: Spontaneous
  Country: US (occurrence: US)
  Receive Date: 20210309
  Receipt Date: 20210409
  Transmission Date: 20210717
  Serious: Yes (Other)
  Sender: FDA-Public Use
  Company Number: US-009507513-2103USA001366

PATIENT
  Age: 70 Year
  Sex: Female

DRUGS (2)
  1. DIPROLINE [Concomitant]
  2. KEYTRUDA [Suspect]
     Active Substance: PEMBROLIZUMAB
     Indication: LUNG NEOPLASM MALIGNANT
     Dosage: UNK
     Route: 042
     Dates: start: 202006

REACTIONS (6)
  - Skin abrasion [Recovering/Resolving]
  - Headache [Not Recovered/Not Resolved]
  - Skin abrasion [Recovered/Resolved]
  - Vertigo [Not Recovered/Not Resolved]
  - Malignant neoplasm progression [Unknown]
  - Rash [Recovering/Resolving]

NARRATIVE: CASE EVENT DATE: 202101
